FAERS Safety Report 6315795-X (Version None)
Quarter: 2009Q3

REPORT INFORMATION
  Report Type: 
  Country: None (occurrence: None)
  Receive Date: 20090820
  Receipt Date: 20090813
  Transmission Date: 20100115
  Serious: Yes (Hospitalization)
  Sender: FDA-Public Use
  Company Number: BR-BIOGENIDEC-2009BI020803

PATIENT
  Age: 57 Year
  Sex: Female

DRUGS (6)
  1. AVONEX [Suspect]
     Indication: MULTIPLE SCLEROSIS
     Route: 030
     Dates: start: 20050701
  2. AMITRIPTYLINE [Concomitant]
     Indication: FEELING OF RELAXATION
     Route: 048
     Dates: start: 20050701
  3. AMITRIPTYLINE [Concomitant]
     Indication: PAIN PROPHYLAXIS
     Route: 048
     Dates: start: 20050701
  4. CORTICORTEN [Concomitant]
     Indication: DRUG USE FOR UNKNOWN INDICATION
     Dates: start: 20050701
  5. ACETAMINOPHEN [Concomitant]
     Indication: PAIN PROPHYLAXIS
  6. METICORTEN [Concomitant]
     Indication: SYSTEMIC LUPUS ERYTHEMATOSUS

REACTIONS (7)
  - BLOOD GLUCOSE INCREASED [None]
  - CENTRAL NERVOUS SYSTEM LESION [None]
  - DIZZINESS [None]
  - HEADACHE [None]
  - INSOMNIA [None]
  - MULTIPLE SCLEROSIS [None]
  - VOMITING [None]
